FAERS Safety Report 4519251-0 (Version None)
Quarter: 2004Q4

REPORT INFORMATION
  Report Type: 
  Country: None (occurrence: None)
  Receive Date: 20041201
  Receipt Date: 20041118
  Transmission Date: 20050328
  Serious: Yes (Death, Hospitalization)
  Sender: FDA-Public Use
  Company Number: 2004067452

PATIENT
  Age: 72 Year
  Sex: Male

DRUGS (3)
  1. ZOLOFT [Suspect]
     Indication: DEPRESSION
     Dosage: 50 MG (50 MG, 1 IN 1 D)
     Dates: start: 20040812, end: 20040101
  2. CAPTOPRIL [Concomitant]
  3. FUROSEMIDE [Concomitant]

REACTIONS (6)
  - ACUTE RESPIRATORY FAILURE [None]
  - ASTHENIA [None]
  - HYPONATRAEMIA [None]
  - SEPTIC SHOCK [None]
  - SUPERINFECTION [None]
  - SUPERINFECTION LUNG [None]
